FAERS Safety Report 19388874 (Version 1)
Quarter: 2021Q2

REPORT INFORMATION
  Report Type: Spontaneous
  Country: US (occurrence: US)
  Receive Date: 20210607
  Receipt Date: 20210607
  Transmission Date: 20210717
  Serious: Yes (Hospitalization)
  Sender: FDA-Public Use
  Company Number: None

PATIENT
  Age: 65 Year
  Sex: Male

DRUGS (19)
  1. OPSUMIT [Suspect]
     Active Substance: MACITENTAN
     Indication: PULMONARY ARTERIAL HYPERTENSION
     Route: 048
     Dates: start: 20171003
  2. DULOXETINE. [Concomitant]
     Active Substance: DULOXETINE
  3. HUMULIN N [Concomitant]
     Active Substance: INSULIN HUMAN
  4. TIZANIDINE. [Concomitant]
     Active Substance: TIZANIDINE
  5. VALBENAZINE [Concomitant]
     Active Substance: VALBENAZINE
  6. PRADAXA [Concomitant]
     Active Substance: DABIGATRAN ETEXILATE MESYLATE
  7. ASCORBIC ACID. [Concomitant]
     Active Substance: ASCORBIC ACID
  8. SLOW?MAG [Concomitant]
     Active Substance: MAGNESIUM CHLORIDE
  9. ANDRODERM [Concomitant]
     Active Substance: TESTOSTERONE
  10. NARCAN N [Concomitant]
  11. FERROUS SULFATE. [Concomitant]
     Active Substance: FERROUS SULFATE
  12. TAMSULOSIN [Concomitant]
     Active Substance: TAMSULOSIN
  13. MORPINE [Concomitant]
  14. FUROSEMIDE. [Concomitant]
     Active Substance: FUROSEMIDE
  15. PANTOPRAZOLE [Concomitant]
     Active Substance: PANTOPRAZOLE
  16. ATORVASTATIN [Concomitant]
     Active Substance: ATORVASTATIN
  17. SERTRALINE [Concomitant]
     Active Substance: SERTRALINE HYDROCHLORIDE
  18. HYDROXYZINE [Concomitant]
     Active Substance: HYDROXYZINE HYDROCHLORIDE
  19. NORTRIPTYLINE [Concomitant]
     Active Substance: NORTRIPTYLINE

REACTIONS (6)
  - Diarrhoea [None]
  - Acute kidney injury [None]
  - Dizziness [None]
  - Nausea [None]
  - Vomiting [None]
  - Hypotension [None]

NARRATIVE: CASE EVENT DATE: 20210521
